FAERS Safety Report 7292608-3 (Version None)
Quarter: 2011Q1

REPORT INFORMATION
  Report Type: 
  Country: None (occurrence: None)
  Receive Date: 20110215
  Receipt Date: 20110210
  Transmission Date: 20110831
  Serious: No
  Sender: FDA-Public Use
  Company Number: US-JNJFOC-20110106137

PATIENT
  Sex: Female
  Weight: 94.35 kg

DRUGS (7)
  1. DURAGESIC-50 [Suspect]
     Route: 062
  2. UNKNOWN MEDICATION [Concomitant]
     Indication: PAIN
     Route: 050
  3. DURAGESIC-50 [Suspect]
     Indication: PAIN
     Route: 062
  4. DURAGESIC-50 [Suspect]
     Route: 062
  5. DURAGESIC-50 [Suspect]
     Route: 062
  6. DURAGESIC-50 [Suspect]
     Route: 062
  7. UNKNOWN MEDICATION [Concomitant]
     Indication: ILL-DEFINED DISORDER

REACTIONS (8)
  - DRUG INEFFECTIVE [None]
  - HYPERSENSITIVITY [None]
  - PAIN [None]
  - PRODUCT QUALITY ISSUE [None]
  - SKIN LESION [None]
  - TREATMENT NONCOMPLIANCE [None]
  - DRY MOUTH [None]
  - APPLICATION SITE REACTION [None]
